FAERS Safety Report 6091657-0 (Version None)
Quarter: 2009Q1

REPORT INFORMATION
  Report Type: 
  Country: None (occurrence: None)
  Receive Date: 20090225
  Receipt Date: 20080314
  Transmission Date: 20090719
  Serious: No
  Sender: FDA-Public Use
  Company Number: A0717087A

PATIENT
  Age: 33 Year
  Sex: Male

DRUGS (6)
  1. VALTREX [Suspect]
     Indication: DRUG USE FOR UNKNOWN INDICATION
     Route: 048
  2. CLOZAPINE [Suspect]
  3. BACTRIM [Concomitant]
  4. VELCADE [Concomitant]
  5. ZOMETA [Concomitant]
  6. REVLIMID [Concomitant]

REACTIONS (1)
  - PYREXIA [None]
